FAERS Safety Report 5337281-6 (Version None)
Quarter: 2007Q2

REPORT INFORMATION
  Report Type: 
  Country: None (occurrence: None)
  Receive Date: 20070529
  Receipt Date: 20070524
  Transmission Date: 20071010
  Serious: Yes (Hospitalization)
  Sender: FDA-Public Use
  Company Number: B0472399A

PATIENT
  Age: 64 Year
  Sex: Female
  Weight: 58 kg

DRUGS (2)
  1. AUGMENTIN '125' [Suspect]
     Dosage: 1G SINGLE DOSE
     Route: 048
     Dates: start: 20070319, end: 20070320
  2. ZOFRAN [Concomitant]
     Indication: NAUSEA
     Dosage: 1UNIT SINGLE DOSE
     Route: 042
     Dates: start: 20070319, end: 20070319

REACTIONS (2)
  - DYSPNOEA [None]
  - OEDEMA [None]
